FAERS Safety Report 9542317 (Version 1)
Quarter: 2013Q2

REPORT INFORMATION
  Report Type: Spontaneous
  Country: US (occurrence: None)
  Receive Date: 20130524
  Receipt Date: 20130524
  Transmission Date: 20140414
  Serious: Yes (Other)
  Sender: FDA-Public Use
  Company Number: PHEH2013US003433

PATIENT
  Age: 55 Year
  Sex: Female

DRUGS (2)
  1. GILENYA [Suspect]
     Indication: MULTIPLE SCLEROSIS
     Route: 048
     Dates: start: 20110405
  2. FORTEO(TERIPARATIDE) [Concomitant]

REACTIONS (3)
  - Feeling abnormal [None]
  - Abdominal discomfort [None]
  - Blood cholesterol increased [None]
